FAERS Safety Report 20984790 (Version 1)
Quarter: 2022Q2

REPORT INFORMATION
  Report Type: Spontaneous
  Country: US (occurrence: None)
  Receive Date: 20220621
  Receipt Date: 20220621
  Transmission Date: 20220721
  Serious: No
  Sender: FDA-Public Use
  Company Number: US-ROCHE-2826772

PATIENT
  Age: 65 Year
  Sex: Female

DRUGS (1)
  1. XELODA [Suspect]
     Active Substance: CAPECITABINE
     Indication: Product used for unknown indication
     Dosage: 1500 MG AM AND 1000 MG PM
     Route: 048
     Dates: start: 202104

REACTIONS (8)
  - Palmar-plantar erythrodysaesthesia syndrome [Unknown]
  - Skin discolouration [Unknown]
  - Rash [Unknown]
  - Lacrimation increased [Unknown]
  - Epistaxis [Unknown]
  - Bone pain [Unknown]
  - Eye irritation [Unknown]
  - Nasal discomfort [Unknown]

NARRATIVE: CASE EVENT DATE: 20210428
